FAERS Safety Report 4613237-3 (Version None)
Quarter: 2005Q1

REPORT INFORMATION
  Report Type: 
  Country: None (occurrence: None)
  Receive Date: 20050315
  Receipt Date: 20050302
  Transmission Date: 20050727
  Serious: Yes (Death)
  Sender: FDA-Public Use
  Company Number: 2005040038

PATIENT
  Age: 50 Year
  Sex: Female

DRUGS (2)
  1. AROMASIN [Suspect]
     Indication: BREAST CANCER
     Dosage: ORAL
     Route: 048
  2. ANASTROZOLE (ANASTROZOLE) [Concomitant]

REACTIONS (1)
  - CARDIAC ARREST [None]
